FAERS Safety Report 8247026-8 (Version None)
Quarter: 2012Q1

REPORT INFORMATION
  Report Type: 
  Country: None (occurrence: None)
  Receive Date: 20120330
  Receipt Date: 20120330
  Transmission Date: 20120608
  Serious: Yes (Hospitalization)
  Sender: FDA-Public Use
  Company Number: None

PATIENT
  Age: 42 Year
  Sex: Female
  Weight: 61.234 kg

DRUGS (2)
  1. DROSPIRENONE AND ETHINYL ESTRADIOL [Suspect]
     Indication: OVARIAN CYST
     Dates: start: 20100501, end: 20120310
  2. DROSPIRENONE AND ETHINYL ESTRADIOL [Suspect]
     Indication: PROPHYLAXIS
     Dates: start: 20100501, end: 20120310

REACTIONS (1)
  - CHOLECYSTITIS [None]
